FAERS Safety Report 7149441-2 (Version None)
Quarter: 2010Q4

REPORT INFORMATION
  Report Type: 
  Country: None (occurrence: None)
  Receive Date: 20101209
  Receipt Date: 20101125
  Transmission Date: 20110411
  Serious: No
  Sender: FDA-Public Use
  Company Number: US-PFIZER INC-2010157997

PATIENT
  Sex: Female
  Weight: 54.422 kg

DRUGS (1)
  1. PREMARIN [Suspect]
     Dosage: 0.05 MG, 1X/DAY
     Dates: start: 20101123, end: 20101124

REACTIONS (4)
  - BURNING SENSATION [None]
  - DIZZINESS [None]
  - FATIGUE [None]
  - HEADACHE [None]
